FAERS Safety Report 5702737-0 (Version None)
Quarter: 2008Q2

REPORT INFORMATION
  Report Type: 
  Country: None (occurrence: None)
  Receive Date: 20080411
  Receipt Date: 20080331
  Transmission Date: 20081010
  Serious: Yes (Death, Life-Threatening, Hospitalization)
  Sender: FDA-Public Use
  Company Number: B0508765A

PATIENT
  Age: 74 Year
  Sex: Female
  Weight: 100 kg

DRUGS (9)
  1. LAMICTAL [Suspect]
     Indication: CONVULSION
     Route: 048
     Dates: start: 20080108
  2. METHOTREXATE [Suspect]
     Indication: RHEUMATOID ARTHRITIS
     Dates: start: 20050101, end: 20071227
  3. NOVATREX [Concomitant]
     Indication: RHEUMATOID ARTHRITIS
     Dosage: 12.5MG WEEKLY
     Route: 065
  4. CORTANCYL [Concomitant]
     Indication: POLYARTHRITIS
     Dosage: 10MG PER DAY
     Route: 065
  5. GARDENAL [Concomitant]
     Indication: CONVULSION
     Dosage: 40MG TWICE PER DAY
     Route: 065
  6. TRIVASTAL [Concomitant]
     Indication: DRUG USE FOR UNKNOWN INDICATION
     Route: 065
  7. SPECIAFOLDINE [Concomitant]
     Dosage: 1TAB TWICE PER DAY
     Route: 048
     Dates: start: 20071201
  8. VITAMIN B COMPLEX CAP [Concomitant]
     Dates: start: 20071201
  9. STEROGYL [Concomitant]
     Dates: start: 20071201

REACTIONS (13)
  - ALTERED STATE OF CONSCIOUSNESS [None]
  - CHOLESTASIS [None]
  - CONFUSIONAL STATE [None]
  - ENCEPHALOPATHY [None]
  - FATIGUE [None]
  - GENERAL PHYSICAL HEALTH DETERIORATION [None]
  - HAEMODYNAMIC INSTABILITY [None]
  - HEPATIC ENZYME INCREASED [None]
  - HEPATITIS FULMINANT [None]
  - HYPOTENSION [None]
  - JAUNDICE [None]
  - PROTHROMBIN TIME PROLONGED [None]
  - RESPIRATORY ARREST [None]
